FAERS Safety Report 13461381 (Version 1)
Quarter: 2017Q2

REPORT INFORMATION
  Report Type: Spontaneous
  Country: US (occurrence: US)
  Receive Date: 20170419
  Receipt Date: 20170419
  Transmission Date: 20170830
  Serious: Yes (Disabling)
  Sender: FDA-Public Use
  Company Number: None

PATIENT
  Age: 55 Year
  Sex: Female
  Weight: 63.9 kg

DRUGS (1)
  1. CEFDINIR. [Suspect]
     Active Substance: CEFDINIR
     Indication: BRONCHITIS
     Dosage: ?          QUANTITY:20 CAPSULE(S);?
     Route: 048
     Dates: start: 20170130, end: 20170208

REACTIONS (7)
  - Impaired work ability [None]
  - Pruritus [None]
  - Feeling abnormal [None]
  - Gait disturbance [None]
  - Skin exfoliation [None]
  - Skin haemorrhage [None]
  - Skin disorder [None]

NARRATIVE: CASE EVENT DATE: 20170221
